FAERS Safety Report 5229861-3 (Version None)
Quarter: 2007Q1

REPORT INFORMATION
  Report Type: 
  Country: None (occurrence: None)
  Receive Date: 20070206
  Receipt Date: 20060630
  Transmission Date: 20070707
  Serious: No
  Sender: FDA-Public Use
  Company Number: US-GLAXOSMITHKLINE-A0566550A

PATIENT
  Age: 29 Year
  Sex: Female

DRUGS (9)
  1. PAXIL [Suspect]
     Indication: IRRITABLE BOWEL SYNDROME
     Route: 048
     Dates: start: 20020101
  2. FLOVENT [Concomitant]
     Dosage: 2PUFF TWICE PER DAY
     Route: 055
  3. ATENOLOL [Concomitant]
  4. SINGULAIR [Concomitant]
  5. ALBUTEROL [Concomitant]
  6. IMITREX [Concomitant]
     Dosage: 25MG AS REQUIRED
     Route: 048
  7. FIORICET [Concomitant]
  8. BELLADONNA + PHENOBARBITAL [Concomitant]
  9. ADDERALL 10 [Concomitant]

REACTIONS (12)
  - ABDOMINAL PAIN [None]
  - CONFUSIONAL STATE [None]
  - DIZZINESS [None]
  - DRUG WITHDRAWAL SYNDROME [None]
  - FATIGUE [None]
  - HEADACHE [None]
  - HYPERHIDROSIS [None]
  - IRRITABILITY [None]
  - MOOD ALTERED [None]
  - NAUSEA [None]
  - PARAESTHESIA [None]
  - VERTIGO [None]
